FAERS Safety Report 9526902 (Version 1)
Quarter: 2013Q3

REPORT INFORMATION
  Report Type: Report from Study
  Country: US (occurrence: US)
  Receive Date: 20130916
  Receipt Date: 20130916
  Transmission Date: 20140515
  Serious: Yes (Other)
  Sender: FDA-Public Use
  Company Number: US-US-EMD SERONO, INC.-7236670

PATIENT
  Sex: Female

DRUGS (2)
  1. REBIF [Suspect]
     Indication: MULTIPLE SCLEROSIS
     Route: 058
     Dates: start: 20060106
  2. REBIF [Suspect]

REACTIONS (3)
  - Cellulitis [Recovered/Resolved]
  - Feeling cold [Unknown]
  - Pyrexia [Recovered/Resolved]
